FAERS Safety Report 8260177-7 (Version None)
Quarter: 2012Q2

REPORT INFORMATION
  Report Type: 
  Country: None (occurrence: None)
  Receive Date: 20120404
  Receipt Date: 20120323
  Transmission Date: 20120825
  Serious: Yes (Other)
  Sender: FDA-Public Use
  Company Number: JP-BRISTOL-MYERS SQUIBB COMPANY-16481459

PATIENT

DRUGS (3)
  1. VINCRISTINE SULFATE [Suspect]
     Indication: RETINOBLASTOMA
  2. ETOPOSIDE [Suspect]
     Indication: RETINOBLASTOMA
     Dosage: INJECTION
  3. CARBOPLATIN [Suspect]
     Indication: RETINOBLASTOMA

REACTIONS (2)
  - INTUSSUSCEPTION [None]
  - GASTROENTERITIS [None]
